FAERS Safety Report 7893192-3 (Version None)
Quarter: 2011Q4

REPORT INFORMATION
  Report Type: 
  Country: None (occurrence: None)
  Receive Date: 20111104
  Receipt Date: 20111022
  Transmission Date: 20120403
  Serious: Yes (Other)
  Sender: FDA-Public Use
  Company Number: PHHY2011GB10549

PATIENT
  Sex: Female

DRUGS (1)
  1. PARLODEL [Suspect]
     Indication: PROLACTINOMA
     Dosage: 10 MG, BID

REACTIONS (4)
  - DEPRESSION [None]
  - IMPULSIVE BEHAVIOUR [None]
  - ANGER [None]
  - PATHOLOGICAL GAMBLING [None]
